FAERS Safety Report 12628741 (Version 1)
Quarter: 2016Q3

REPORT INFORMATION
  Report Type: Spontaneous
  Country: US (occurrence: US)
  Receive Date: 20160808
  Receipt Date: 20160808
  Transmission Date: 20161109
  Serious: No
  Sender: FDA-Public Use
  Company Number: US-ASTRAZENECA-2016SE81833

PATIENT
  Age: 1011 Month
  Sex: Female
  Weight: 59.4 kg

DRUGS (5)
  1. OMEPRAZOLE. [Suspect]
     Active Substance: OMEPRAZOLE
     Indication: GASTROOESOPHAGEAL REFLUX DISEASE
     Dosage: 40 MG, ONCE A DAY 30 MINUTES BEFORE BREAKFAST
     Route: 048
  2. IPATROPIUM BROMIDE [Concomitant]
     Active Substance: IPRATROPIUM BROMIDE
     Indication: RESPIRATORY DISORDER
     Dosage: EACH NOSTRIL, ONCE A DAY
     Route: 045
  3. TRAVATAND Z [Concomitant]
     Indication: INTRAOCULAR PRESSURE TEST ABNORMAL
     Dosage: 1 DROP LEFT EYE AT BEDTIME
     Route: 031
  4. CYCLOPENTOLATE. [Concomitant]
     Active Substance: CYCLOPENTOLATE
     Indication: INTRAOCULAR PRESSURE TEST ABNORMAL
     Dosage: 1 DROP ON LEFT EYE TWICE A DAY
     Route: 031
  5. TUDORZA PRESSAIR [Suspect]
     Active Substance: ACLIDINIUM BROMIDE
     Indication: CHRONIC OBSTRUCTIVE PULMONARY DISEASE
     Route: 055
     Dates: start: 201505

REACTIONS (6)
  - Intraocular pressure increased [Unknown]
  - Lacrimation increased [Unknown]
  - Visual acuity reduced [Unknown]
  - Drug dose omission [Unknown]
  - Eye pain [Unknown]
  - Vision blurred [Unknown]

NARRATIVE: CASE EVENT DATE: 201605
